FAERS Safety Report 9278011 (Version 1)
Quarter: 2013Q2

REPORT INFORMATION
  Report Type: Spontaneous
  Country: US (occurrence: None)
  Receive Date: 20130503
  Receipt Date: 20130503
  Transmission Date: 20140414
  Serious: Yes (Other)
  Sender: FDA-Public Use
  Company Number: None

PATIENT
  Age: 47 Year
  Sex: Male

DRUGS (6)
  1. AMBIEN [Suspect]
  2. AMBIEN [Suspect]
  3. TOPROL [Concomitant]
  4. NORVASC [Concomitant]
  5. BUSPAR [Concomitant]
  6. PAXIL [Concomitant]

REACTIONS (4)
  - Hallucination [None]
  - Suicidal ideation [None]
  - Homicidal ideation [None]
  - Suicide attempt [None]
